FAERS Safety Report 9249155 (Version 1)
Quarter: 2013Q2

REPORT INFORMATION
  Report Type: Spontaneous
  Country: US (occurrence: US)
  Receive Date: 20130423
  Receipt Date: 20130423
  Transmission Date: 20140414
  Serious: No
  Sender: FDA-Public Use
  Company Number: US-BAYER-2013-050745

PATIENT
  Age: 43 Year
  Sex: Male
  Weight: 122.45 kg

DRUGS (5)
  1. ALEVE CAPLET [Suspect]
     Indication: ANALGESIC THERAPY
     Dosage: 4 DF, BID
     Route: 048
     Dates: start: 201303
  2. ALEVE LIQUID GELS [Suspect]
     Indication: ANALGESIC THERAPY
     Dosage: 4 DF, BID
     Route: 048
     Dates: start: 2008
  3. OMEPRAZOLE [Concomitant]
  4. ACIDOPHILUS [Concomitant]
  5. CLONAZEPAM [Concomitant]

REACTIONS (2)
  - Incorrect drug administration duration [None]
  - Incorrect dose administered [None]
